FAERS Safety Report 16141718 (Version 2)
Quarter: 2019Q3

REPORT INFORMATION
  Report Type: Report from Study
  Country: US (occurrence: US)
  Receive Date: 20190401
  Receipt Date: 20190701
  Transmission Date: 20191004
  Serious: No
  Sender: FDA-Public Use
  Company Number: US-CLOVIS ONCOLOGY-CLO-2019-000539

PATIENT
  Age: 52 Year
  Sex: Female

DRUGS (3)
  1. RUBRACA [Suspect]
     Active Substance: RUCAPARIB CAMSYLATE
     Indication: OVARIAN CANCER
     Dosage: 500 MG, BID
     Route: 048
     Dates: start: 20171229
  2. RUBRACA [Suspect]
     Active Substance: RUCAPARIB CAMSYLATE
     Dosage: 600 MG, BID
     Route: 048
     Dates: start: 201712
  3. RUBRACA [Suspect]
     Active Substance: RUCAPARIB CAMSYLATE
     Dosage: 500 MG, BID
     Route: 048
     Dates: start: 201801

REACTIONS (12)
  - Fatigue [Unknown]
  - Haemorrhoids [Unknown]
  - Alopecia [Unknown]
  - Liver function test increased [Recovered/Resolved]
  - Dyspnoea [Unknown]
  - Sunburn [Unknown]
  - Hypercholesterolaemia [Not Recovered/Not Resolved]
  - Nausea [Not Recovered/Not Resolved]
  - Back pain [Unknown]
  - Hot flush [Unknown]
  - Night sweats [Unknown]
  - Dysgeusia [Unknown]

NARRATIVE: CASE EVENT DATE: 201801
